FAERS Safety Report 24976430 (Version 2)
Quarter: 2025Q1

REPORT INFORMATION
  Report Type: Spontaneous
  Country: GR (occurrence: GR)
  Receive Date: 20250217
  Receipt Date: 20250305
  Transmission Date: 20250409
  Serious: Yes (Other)
  Sender: GUERBET
  Company Number: GR-GUERBET/REMEK PHARMACEUTICALS S.A.-GR-20250001

PATIENT
  Age: 31 Year
  Sex: Female
  Weight: 88 kg

DRUGS (5)
  1. DOTAREM [Suspect]
     Active Substance: GADOTERATE MEGLUMINE
     Indication: Magnetic resonance imaging head
     Dosage: 1 SINGLE DOSE
     Route: 042
     Dates: start: 20241210, end: 20241210
  2. CALCIUM [Concomitant]
     Active Substance: CALCIUM
     Indication: Nutritional supplementation
  3. MAGNESIUM [Concomitant]
     Active Substance: MAGNESIUM
     Indication: Nutritional supplementation
  4. IRON [Concomitant]
     Active Substance: IRON
     Indication: Nutritional supplementation
  5. FOLIC ACID [Concomitant]
     Active Substance: FOLIC ACID
     Indication: Nutritional supplementation

REACTIONS (2)
  - Exposure during pregnancy [Recovered/Resolved]
  - Haemorrhage in pregnancy [Recovered/Resolved]

NARRATIVE: CASE EVENT DATE: 20241210
